FAERS Safety Report 6715856-7 (Version None)
Quarter: 2010Q2

REPORT INFORMATION
  Report Type: 
  Country: None (occurrence: None)
  Receive Date: 20100506
  Receipt Date: 20100506
  Transmission Date: 20101027
  Serious: Yes (Hospitalization)
  Sender: FDA-Public Use
  Company Number: None

PATIENT
  Sex: Male
  Weight: 93.2 kg

DRUGS (2)
  1. XELODA [Suspect]
     Dosage: 42000 MG
  2. GEMCITABINE HCL [Suspect]
     Dosage: 28000 MG

REACTIONS (3)
  - SKIN LACERATION [None]
  - SYNCOPE [None]
  - VENTRICULAR TACHYCARDIA [None]
